FAERS Safety Report 7792847-9 (Version None)
Quarter: 2011Q4

REPORT INFORMATION
  Report Type: 
  Country: None (occurrence: None)
  Receive Date: 20111003
  Receipt Date: 20110926
  Transmission Date: 20120403
  Serious: Yes (Other)
  Sender: FDA-Public Use
  Company Number: JP-GLAXOSMITHKLINE-B0746047A

PATIENT
  Sex: Female
  Weight: 28 kg

DRUGS (9)
  1. CALCIUM CARBONATE [Concomitant]
     Dosage: 1200MG PER DAY
     Route: 048
     Dates: start: 20110903
  2. CARVEDILOL [Concomitant]
     Dosage: 2.5MG PER DAY
     Route: 048
     Dates: start: 20110903
  3. MILLIS [Concomitant]
     Dosage: 10MG PER DAY
     Route: 062
     Dates: start: 20110903
  4. LANSOPRAZOLE [Concomitant]
     Dosage: 15MG PER DAY
     Route: 048
     Dates: start: 20110903
  5. ASPIRIN [Concomitant]
     Dosage: .1G PER DAY
     Route: 048
     Dates: start: 20110903
  6. PURSENNID [Concomitant]
     Dosage: 12MG PER DAY
     Route: 048
     Dates: start: 20110903
  7. VALTREX [Suspect]
     Indication: HERPES ZOSTER
     Dosage: 500MG TWICE PER DAY
     Route: 048
     Dates: start: 20110901, end: 20110903
  8. FOSRENOL [Concomitant]
     Dosage: 500MG PER DAY
     Route: 048
     Dates: start: 20110903
  9. LOCHOLEST [Concomitant]
     Dosage: 30MG PER DAY
     Route: 048
     Dates: start: 20110903

REACTIONS (3)
  - DELIRIUM [None]
  - SOLILOQUY [None]
  - DECREASED APPETITE [None]
